FAERS Safety Report 9349270 (Version 3)
Quarter: 2013Q4

REPORT INFORMATION
  Report Type: Spontaneous
  Country: US (occurrence: US)
  Receive Date: 20130614
  Receipt Date: 20131121
  Transmission Date: 20140711
  Serious: Yes (Other)
  Sender: FDA-Public Use
  Company Number: US-PFIZER INC-2013175213

PATIENT
  Age: 76 Year
  Sex: Female
  Weight: 61.68 kg

DRUGS (5)
  1. TOVIAZ [Suspect]
     Indication: HYPERTONIC BLADDER
     Dosage: 4 MG, DAILY
     Dates: start: 20130624, end: 201307
  2. TOVIAZ [Suspect]
     Dosage: 4 MG, DAILY
     Dates: start: 20130704
  3. TOVIAZ [Suspect]
     Dosage: UNK
     Dates: start: 20130624, end: 2013
  4. NAMENDA [Concomitant]
     Indication: DEMENTIA
     Dosage: 10 MG, 2X/DAY
     Route: 048
  5. ARICEPT [Concomitant]
     Indication: DEMENTIA
     Dosage: UNKNOWN DOSE, DAILY

REACTIONS (8)
  - Asthma [Unknown]
  - Laryngitis [Recovered/Resolved]
  - Dysphonia [Recovered/Resolved]
  - Sinus disorder [Unknown]
  - Hypersensitivity [Unknown]
  - Feeling abnormal [Recovered/Resolved]
  - Drug ineffective [Unknown]
  - Dry throat [Unknown]
